FAERS Safety Report 11221903 (Version 2)
Quarter: 2015Q3

REPORT INFORMATION
  Report Type: Spontaneous
  Country: US (occurrence: US)
  Receive Date: 20150626
  Receipt Date: 20150923
  Transmission Date: 20151125
  Serious: Yes (Other)
  Sender: FDA-Public Use
  Company Number: US-BAYER-2015-365342

PATIENT
  Age: 56 Year
  Sex: Male
  Weight: 58.96 kg

DRUGS (4)
  1. GADAVIST [Suspect]
     Active Substance: GADOBUTROL
     Indication: NUCLEAR MAGNETIC RESONANCE IMAGING SPINAL
     Dosage: 5.5 ML, ONCE
     Route: 042
     Dates: start: 20150622, end: 20150622
  2. MORPHINE [Concomitant]
     Active Substance: MORPHINE
  3. IBUPROFEN. [Concomitant]
     Active Substance: IBUPROFEN
  4. LIDODERM [Concomitant]
     Active Substance: LIDOCAINE

REACTIONS (3)
  - Throat irritation [None]
  - Dysphagia [None]
  - Pharyngeal oedema [None]

NARRATIVE: CASE EVENT DATE: 20150622
